FAERS Safety Report 24900815 (Version 1)
Quarter: 2025Q1

REPORT INFORMATION
  Report Type: Spontaneous
  Country: US (occurrence: US)
  Receive Date: 20250129
  Receipt Date: 20250129
  Transmission Date: 20250409
  Serious: Yes (Death, Hospitalization)
  Sender: NOVAST LABORATORIES LTD
  Company Number: US-NOVAST LABORATORIES INC.-2025NOV000063

PATIENT
  Age: 57 Year
  Sex: Female

DRUGS (6)
  1. CLONIDINE [Suspect]
     Active Substance: CLONIDINE
     Indication: Product used for unknown indication
  2. LITHIUM [Suspect]
     Active Substance: LITHIUM
     Indication: Product used for unknown indication
  3. CLONAZEPAM [Suspect]
     Active Substance: CLONAZEPAM
     Indication: Product used for unknown indication
  4. PREGABALIN [Suspect]
     Active Substance: PREGABALIN
     Indication: Product used for unknown indication
  5. CETIRIZINE [Suspect]
     Active Substance: CETIRIZINE HYDROCHLORIDE
     Indication: Product used for unknown indication
  6. FLUOXETINE [Suspect]
     Active Substance: FLUOXETINE HYDROCHLORIDE
     Indication: Product used for unknown indication

REACTIONS (1)
  - Suspected suicide [Fatal]
